FAERS Safety Report 7303166-9 (Version None)
Quarter: 2011Q1

REPORT INFORMATION
  Report Type: 
  Country: None (occurrence: None)
  Receive Date: 20110221
  Receipt Date: 20110207
  Transmission Date: 20110831
  Serious: No
  Sender: FDA-Public Use
  Company Number: US-BIOGENIDEC-2011BI005514

PATIENT
  Age: 40 Year
  Sex: Male

DRUGS (2)
  1. SLEEP MEDICATION (NOS) [Concomitant]
  2. TYSABRI [Suspect]
     Indication: MULTIPLE SCLEROSIS
     Route: 042
     Dates: start: 20100922

REACTIONS (4)
  - ABNORMAL DREAMS [None]
  - HYPOAESTHESIA [None]
  - MEMORY IMPAIRMENT [None]
  - DRUG SPECIFIC ANTIBODY PRESENT [None]
